FAERS Safety Report 4548204-1 (Version None)
Quarter: 2004Q4

REPORT INFORMATION
  Report Type: 
  Country: None (occurrence: None)
  Receive Date: 20041220
  Receipt Date: 20040824
  Transmission Date: 20050328
  Serious: Yes (Life-Threatening, Hospitalization, Other)
  Sender: FDA-Public Use
  Company Number: US_990827364

PATIENT
  Age: 58 Year
  Sex: Female
  Weight: 68.0396 kg

DRUGS (8)
  1. HUMALOG [Suspect]
     Indication: DIABETES MELLITUS INSULIN-DEPENDENT
     Dosage: 6 U DAY
  2. HUMULIN U [Suspect]
     Indication: DIABETES MELLITUS INSULIN-DEPENDENT
     Dosage: 13U/DAY
  3. PROZAC [Suspect]
  4. INSULIN [Suspect]
  5. EQUAGESIC [Concomitant]
  6. CODEINE [Concomitant]
  7. LASIX [Concomitant]
  8. HYCODAN [Concomitant]

REACTIONS (12)
  - ANKLE FRACTURE [None]
  - BALANCE DISORDER [None]
  - BLOOD GLUCOSE INCREASED [None]
  - CATARACT [None]
  - COUGH [None]
  - DIABETIC RETINOPATHY [None]
  - FEELING ABNORMAL [None]
  - PANIC ATTACK [None]
  - PNEUMONIA [None]
  - RESPIRATORY ARREST [None]
  - RIB FRACTURE [None]
  - VISUAL ACUITY REDUCED [None]
